FAERS Safety Report 24608359 (Version 2)
Quarter: 2024Q4

REPORT INFORMATION
  Report Type: Spontaneous
  Country: IT (occurrence: IT)
  Receive Date: 20241112
  Receipt Date: 20241216
  Transmission Date: 20250115
  Serious: Yes (Other)
  Sender: LAVIPHARM
  Company Number: IT-Lavipharm SA-2164909

PATIENT
  Age: 80 Year
  Sex: Male

DRUGS (3)
  1. CLONIDINE [Suspect]
     Active Substance: CLONIDINE
     Dates: start: 20210101, end: 20210524
  2. BISOPROLOL FUMARATE [Suspect]
     Active Substance: BISOPROLOL FUMARATE
     Dates: start: 20210101, end: 20210524
  3. ASCRIPTIN [Concomitant]
     Active Substance: ASPIRIN

REACTIONS (2)
  - Bradycardia [Not Recovered/Not Resolved]
  - Presyncope [Not Recovered/Not Resolved]

NARRATIVE: CASE EVENT DATE: 20210524
